FAERS Safety Report 11626797 (Version 1)
Quarter: 2015Q4

REPORT INFORMATION
  Report Type: Report from Study
  Country: US (occurrence: US)
  Receive Date: 20151013
  Receipt Date: 20151013
  Transmission Date: 20160304
  Serious: No
  Sender: FDA-Public Use
  Company Number: PHEH2015US020349

PATIENT
  Sex: Male

DRUGS (1)
  1. AFINITOR [Suspect]
     Active Substance: EVEROLIMUS
     Indication: PANCREATIC CARCINOMA
     Dosage: 40 MG, QMO
     Route: 058

REACTIONS (4)
  - General physical health deterioration [Unknown]
  - Blood glucose decreased [Unknown]
  - Food intolerance [Unknown]
  - Weight decreased [Unknown]
